FAERS Safety Report 8274447-X (Version None)
Quarter: 2012Q2

REPORT INFORMATION
  Report Type: 
  Country: None (occurrence: None)
  Receive Date: 20120411
  Receipt Date: 20120402
  Transmission Date: 20120825
  Serious: Yes (Other)
  Sender: FDA-Public Use
  Company Number: HR-TEVA-331825ISR

PATIENT
  Age: 58 Year
  Sex: Male

DRUGS (2)
  1. LIPIODOL [Concomitant]
     Indication: HEPATIC NEOPLASM MALIGNANT
     Route: 013
     Dates: start: 20110629, end: 20110909
  2. DOXORUBICIN PLIVA-TEVA [Suspect]
     Indication: HEPATIC NEOPLASM MALIGNANT
     Route: 013
     Dates: start: 20110629

REACTIONS (1)
  - ARTERIOVENOUS FISTULA [None]
